FAERS Safety Report 15655878 (Version 1)
Quarter: 2018Q4

REPORT INFORMATION
  Report Type: Report from Study
  Country: IL (occurrence: IL)
  Receive Date: 20181126
  Receipt Date: 20181126
  Transmission Date: 20190205
  Serious: Yes (Hospitalization)
  Sender: FDA-Public Use
  Company Number: IL-ACTELION-A-CH2018-181998

PATIENT
  Age: 36 Year
  Sex: Male

DRUGS (5)
  1. VOLIBRIS [Concomitant]
     Active Substance: AMBRISENTAN
  2. FUSID [FUROSEMIDE] [Concomitant]
     Active Substance: FUROSEMIDE
  3. REVATIO [Concomitant]
     Active Substance: SILDENAFIL CITRATE
  4. UPTRAVI [Suspect]
     Active Substance: SELEXIPAG
     Indication: PULMONARY ARTERIAL HYPERTENSION
     Dosage: 400 MCG, BID
     Route: 048
     Dates: start: 20181021, end: 20181114
  5. OXYGEN. [Concomitant]
     Active Substance: OXYGEN

REACTIONS (2)
  - Loss of consciousness [Not Recovered/Not Resolved]
  - Fall [Not Recovered/Not Resolved]

NARRATIVE: CASE EVENT DATE: 20181113
